FAERS Safety Report 22173928 (Version 1)
Quarter: 2023Q2

REPORT INFORMATION
  Report Type: Report from Study
  Country: MX (occurrence: MX)
  Receive Date: 20230404
  Receipt Date: 20230404
  Transmission Date: 20230722
  Serious: Yes (Other)
  Sender: FDA-Public Use
  Company Number: MX-ABBVIE-4713899

PATIENT
  Sex: Male
  Weight: 66 kg

DRUGS (3)
  1. VENCLEXTA [Suspect]
     Active Substance: VENETOCLAX
     Indication: Chronic lymphocytic leukaemia
     Dosage: 400 MILLIGRAM?FORM STRENGTH: 100 MG
     Route: 048
     Dates: start: 20220708, end: 20230315
  2. ACALABRUTINIB [Concomitant]
     Active Substance: ACALABRUTINIB
     Indication: Chronic lymphocytic leukaemia
     Dates: start: 20230316
  3. OBINUTUZUMAB [Concomitant]
     Active Substance: OBINUTUZUMAB
     Indication: Product used for unknown indication
     Dates: start: 20230316

REACTIONS (2)
  - Neoplasm [Not Recovered/Not Resolved]
  - Lymphoma [Not Recovered/Not Resolved]
